FAERS Safety Report 4288714-8 (Version None)
Quarter: 2004Q1

REPORT INFORMATION
  Report Type: 
  Country: None (occurrence: None)
  Receive Date: 20040209
  Receipt Date: 20030908
  Transmission Date: 20041129
  Serious: Yes (Hospitalization, Disabling, Other)
  Sender: FDA-Public Use
  Company Number: WAES 0309USA00838

PATIENT
  Age: 77 Year
  Sex: Male
  Weight: 109 kg

DRUGS (5)
  1. ASPIRIN [Concomitant]
  2. GLUCOSAMINE [Concomitant]
  3. LEVOTHYROXINE SODIUM [Concomitant]
  4. VIOXX [Suspect]
     Indication: MONARTHRITIS
     Route: 048
     Dates: start: 20010101, end: 20011001
  5. HYTRIN [Concomitant]

REACTIONS (14)
  - ATRIAL FIBRILLATION [None]
  - BLOOD POTASSIUM DECREASED [None]
  - BURNS SECOND DEGREE [None]
  - CARDIOMEGALY [None]
  - CEREBRAL INFARCTION [None]
  - CEREBROVASCULAR ACCIDENT [None]
  - DEAFNESS NEUROSENSORY [None]
  - DEPRESSION [None]
  - EMOTIONAL DISTRESS [None]
  - LOCALISED OSTEOARTHRITIS [None]
  - MYOCARDIAL INFARCTION [None]
  - MYOFASCIAL PAIN SYNDROME [None]
  - NEUROGENIC BLADDER [None]
  - PLATELET COUNT DECREASED [None]
